FAERS Safety Report 10167432 (Version 2)
Quarter: 2014Q2

REPORT INFORMATION
  Report Type: Spontaneous
  Country: US (occurrence: US)
  Receive Date: 20140512
  Receipt Date: 20140512
  Transmission Date: 20141212
  Serious: Yes (Other)
  Sender: FDA-Public Use
  Company Number: CHPA2014US006078

PATIENT
  Age: 59 Year
  Sex: Female

DRUGS (3)
  1. VOLTAREN GEL [Suspect]
     Indication: OSTEOARTHRITIS
     Dosage: QUARTER OF A DOT, UNK
     Route: 061
     Dates: start: 2012
  2. TRIAMTERENE [Suspect]
     Dosage: UNK
     Dates: start: 20140502
  3. PREDNISONE TABLETS USP [Suspect]
     Indication: ADRENAL DISORDER
     Dosage: 40 MG, QD
     Dates: start: 201404

REACTIONS (3)
  - Weight increased [Not Recovered/Not Resolved]
  - Drug administered at inappropriate site [Unknown]
  - Wrong technique in drug usage process [Unknown]
